FAERS Safety Report 6007254-9 (Version None)
Quarter: 2008Q4

REPORT INFORMATION
  Report Type: 
  Country: None (occurrence: None)
  Receive Date: 20081217
  Receipt Date: 20080206
  Transmission Date: 20090506
  Serious: No
  Sender: FDA-Public Use
  Company Number: US-ASTRAZENECA-2008UW02513

PATIENT
  Age: 59 Year
  Sex: Female
  Weight: 61.2 kg

DRUGS (3)
  1. CRESTOR [Suspect]
     Indication: BLOOD CHOLESTEROL INCREASED
     Route: 048
  2. MULTI-VITAMINS [Concomitant]
  3. DIAZIDE [Concomitant]

REACTIONS (8)
  - ANXIETY [None]
  - BACK PAIN [None]
  - DEPRESSION [None]
  - HEADACHE [None]
  - NECK PAIN [None]
  - PALPITATIONS [None]
  - TREMOR [None]
  - VISUAL IMPAIRMENT [None]
